FAERS Safety Report 5911174-5 (Version None)
Quarter: 2008Q4

REPORT INFORMATION
  Report Type: 
  Country: None (occurrence: None)
  Receive Date: 20081007
  Receipt Date: 20080423
  Transmission Date: 20090506
  Serious: No
  Sender: FDA-Public Use
  Company Number: US-BRISTOL-MYERS SQUIBB COMPANY-14162556

PATIENT
  Age: 75 Year
  Sex: Female
  Weight: 76 kg

DRUGS (9)
  1. AVAPRO [Suspect]
     Indication: CARDIAC DISORDER
     Dosage: 1 DOSAGE FORM = 1/2 TAB
  2. OCUVITE LUTEIN [Concomitant]
  3. ATENOLOL [Concomitant]
  4. OMEPRAZOLE [Concomitant]
  5. PAROXETINE HCL [Concomitant]
  6. ZETIA [Concomitant]
  7. AVANDIA [Concomitant]
  8. TRICOR [Concomitant]
  9. VITAMINS [Concomitant]

REACTIONS (1)
  - DIARRHOEA [None]
